FAERS Safety Report 10302534 (Version 1)
Quarter: 2014Q3

REPORT INFORMATION
  Report Type: Spontaneous
  Country: JP (occurrence: JP)
  Receive Date: 20140714
  Receipt Date: 20140714
  Transmission Date: 20150326
  Serious: Yes (Death)
  Sender: FDA-Public Use
  Company Number: PHHY2010JP095585

PATIENT
  Age: 60 Year
  Sex: Female

DRUGS (6)
  1. SANDOSTATIN [Suspect]
     Active Substance: OCTREOTIDE ACETATE
     Indication: PANCREATIC CARCINOMA
     Dosage: 100 UG DAILY
  2. NOVAMIN//PROCHLORPERAZINE MESILATE [Concomitant]
  3. DECADRON [Concomitant]
     Active Substance: DEXAMETHASONE
     Dosage: 6 MG
  4. OPIOIDS [Concomitant]
     Active Substance: UNSPECIFIED INGREDIENT
  5. SANDOSTATIN [Suspect]
     Active Substance: OCTREOTIDE ACETATE
     Indication: METASTASES TO LUNG
  6. SANDOSTATIN [Suspect]
     Active Substance: OCTREOTIDE ACETATE
     Indication: METASTASES TO LIVER

REACTIONS (5)
  - Vomiting [Unknown]
  - Death [Fatal]
  - Nausea [Unknown]
  - Abdominal pain [Unknown]
  - Abdominal distension [Unknown]

NARRATIVE: CASE EVENT DATE: 20070427
